FAERS Safety Report 21147739 (Version 1)
Quarter: 2022Q3

REPORT INFORMATION
  Report Type: Spontaneous
  Country: US (occurrence: None)
  Receive Date: 20220729
  Receipt Date: 20220729
  Transmission Date: 20221026
  Serious: Yes (Hospitalization)
  Sender: FDA-Public Use
  Company Number: None

PATIENT
  Sex: Male
  Weight: 18.6 kg

DRUGS (6)
  1. DAUNORUBICIN [Suspect]
     Active Substance: DAUNORUBICIN
     Dates: end: 20220705
  2. DEXAMETHASONE [Suspect]
     Active Substance: DEXAMETHASONE
     Dates: end: 20220704
  3. VINCRISTINE SULFATE [Suspect]
     Active Substance: VINCRISTINE SULFATE
     Dates: end: 20220412
  4. ONCASPAR [Suspect]
     Active Substance: PEGASPARGASE
     Dates: end: 20220623
  5. CYTARABINE [Suspect]
     Active Substance: CYTARABINE
     Dates: end: 20220620
  6. METHOTREXATE [Suspect]
     Active Substance: METHOTREXATE
     Dates: end: 20220628

REACTIONS (12)
  - Sepsis [None]
  - Alpha haemolytic streptococcal infection [None]
  - Rhinovirus infection [None]
  - Enterovirus infection [None]
  - Mucosal inflammation [None]
  - Oral herpes [None]
  - Cardiac tamponade [None]
  - Acute kidney injury [None]
  - Hyperbilirubinaemia [None]
  - Multiple organ dysfunction syndrome [None]
  - Immune system disorder [None]
  - Haemophagocytic lymphohistiocytosis [None]

NARRATIVE: CASE EVENT DATE: 20220719
